FAERS Safety Report 25730559 (Version 1)
Quarter: 2025Q3

REPORT INFORMATION
  Report Type: Spontaneous
  Country: US (occurrence: US)
  Receive Date: 20250827
  Receipt Date: 20250827
  Transmission Date: 20251020
  Serious: No
  Sender: SANOFI AVENTIS
  Company Number: US-SA-2025SA256094

PATIENT
  Age: 69 Year
  Sex: Female

DRUGS (1)
  1. DUPIXENT [Suspect]
     Active Substance: DUPILUMAB
     Indication: Chronic obstructive pulmonary disease
     Dosage: 300 MG, QOW
     Route: 058
     Dates: start: 20250221

REACTIONS (4)
  - Sputum increased [Recovering/Resolving]
  - Sputum retention [Recovering/Resolving]
  - Chest discomfort [Unknown]
  - Activities of daily living decreased [Unknown]

NARRATIVE: CASE EVENT DATE: 20250701
